FAERS Safety Report 5149916-1 (Version None)
Quarter: 2006Q4

REPORT INFORMATION
  Report Type: 
  Country: None (occurrence: None)
  Receive Date: 20060918
  Receipt Date: 20060509
  Transmission Date: 20070319
  Serious: Yes (Other)
  Sender: FDA-Public Use
  Company Number: US-JNJFOC-20060403982

PATIENT
  Age: 42 Year
  Sex: Male

DRUGS (1)
  1. TOPAMAX [Suspect]
     Indication: EATING DISORDER
     Dosage: 25 MG, 1 IN 24 HOUR, ORAL
     Route: 048
     Dates: start: 20060213

REACTIONS (1)
  - ANGLE CLOSURE GLAUCOMA [None]
